FAERS Safety Report 19892844 (Version 1)
Quarter: 2021Q3

REPORT INFORMATION
  Report Type: Spontaneous
  Country: US (occurrence: US)
  Receive Date: 20210928
  Receipt Date: 20210928
  Transmission Date: 20211014
  Serious: Yes (Life-Threatening)
  Sender: FDA-Public Use
  Company Number: US-ELI_LILLY_AND_COMPANY-US202109009967

PATIENT
  Age: 45 Year
  Sex: Male
  Weight: 61 kg

DRUGS (8)
  1. GLUCAGON. [Suspect]
     Active Substance: GLUCAGON
     Indication: BILIARY TRACT DILATION PROCEDURE
     Dosage: 0.25 MG, TID
     Route: 042
  2. PROPOFOL. [Concomitant]
     Active Substance: PROPOFOL
     Indication: GENERAL ANAESTHESIA
     Dosage: 100 MG, UNKNOWN
     Route: 042
  3. SEVOFLURANE. [Concomitant]
     Active Substance: SEVOFLURANE
     Indication: GENERAL ANAESTHESIA
     Dosage: UNK, UNKNOWN
     Route: 065
  4. SUCCINYLCHOLINE [SUXAMETHONIUM] [Concomitant]
     Active Substance: SUCCINYLCHOLINE
     Indication: GENERAL ANAESTHESIA
     Dosage: 100 MG, UNKNOWN
     Route: 042
  5. FENTANYL. [Concomitant]
     Active Substance: FENTANYL
     Indication: GENERAL ANAESTHESIA
     Dosage: 100 UG, UNKNOWN
     Route: 042
  6. LIDOCAINE. [Concomitant]
     Active Substance: LIDOCAINE
     Indication: GENERAL ANAESTHESIA
     Dosage: 100 MG, UNKNOWN
     Route: 042
  7. LANTUS [Concomitant]
     Active Substance: INSULIN GLARGINE
     Dosage: 20 INTERNATIONAL UNIT, DAILY (AT BEDTIME)
     Route: 058
  8. HUMALOG [Concomitant]
     Active Substance: INSULIN LISPRO
     Dosage: 40 INTERNATIONAL UNIT, DAILY
     Route: 065

REACTIONS (3)
  - Incorrect route of product administration [Unknown]
  - Off label use [Unknown]
  - Hyperkalaemia [Unknown]
